FAERS Safety Report 11746369 (Version 1)
Quarter: 2015Q4

REPORT INFORMATION
  Report Type: Spontaneous
  Country: US (occurrence: None)
  Receive Date: 20151116
  Receipt Date: 20151116
  Transmission Date: 20160304
  Serious: Yes (Life-Threatening, Hospitalization, Disabling)
  Sender: FDA-Public Use
  Company Number: None

PATIENT
  Age: 33 Year
  Sex: Male
  Weight: 70.31 kg

DRUGS (5)
  1. NITROGLYCERINE [Concomitant]
     Active Substance: NITROGLYCERIN
  2. TRAMADOL. [Concomitant]
     Active Substance: TRAMADOL
  3. METOPROLOL [Concomitant]
     Active Substance: METOPROLOL
  4. DILTIAZEM [Concomitant]
     Active Substance: DILTIAZEM
  5. MENS ROGAINE UNSCENTED FORMULA [Suspect]
     Active Substance: MINOXIDIL
     Indication: ALOPECIA
     Dosage: HALF CAP BID APPLIED TO A SURFACE, USUALLY THE SKIN
     Dates: start: 20140401, end: 20140729

REACTIONS (5)
  - Cardiac disorder [None]
  - Electrocardiogram ST segment abnormal [None]
  - Chest discomfort [None]
  - Chest pain [None]
  - Tachycardia [None]

NARRATIVE: CASE EVENT DATE: 20151112
